FAERS Safety Report 10155297 (Version 1)
Quarter: 2014Q2

REPORT INFORMATION
  Report Type: Spontaneous
  Country: AU (occurrence: AU)
  Receive Date: 20140506
  Receipt Date: 20140506
  Transmission Date: 20141212
  Serious: Yes (Hospitalization)
  Sender: FDA-Public Use
  Company Number: PHHY2014AU053906

PATIENT
  Sex: Female

DRUGS (1)
  1. TASIGNA [Suspect]

REACTIONS (4)
  - Cerebrovascular accident [Unknown]
  - Ataxia [Unknown]
  - Psychotic disorder [Unknown]
  - Insomnia [Unknown]
